APPROVED DRUG PRODUCT: TELMISARTAN
Active Ingredient: TELMISARTAN
Strength: 80MG
Dosage Form/Route: TABLET;ORAL
Application: A205901 | Product #003
Applicant: HETERO LABS LTD UNIT V
Approved: Apr 22, 2016 | RLD: No | RS: No | Type: DISCN